FAERS Safety Report 22519505 (Version 1)
Quarter: 2023Q2

REPORT INFORMATION
  Report Type: Spontaneous
  Country: BR (occurrence: BR)
  Receive Date: 20230605
  Receipt Date: 20230605
  Transmission Date: 20230722
  Serious: Yes (Other)
  Sender: FDA-Public Use
  Company Number: BR-ROCHE-2270896

PATIENT
  Age: 48 Year
  Sex: Female
  Weight: 50 kg

DRUGS (19)
  1. BROMAZEPAM [Suspect]
     Active Substance: BROMAZEPAM
     Indication: Depression
  2. CLONAZEPAM [Suspect]
     Active Substance: CLONAZEPAM
     Indication: Sleep disorder therapy
  3. CLONAZEPAM [Suspect]
     Active Substance: CLONAZEPAM
     Indication: Insomnia
  4. OCREVUS [Suspect]
     Active Substance: OCRELIZUMAB
     Indication: Neurogenic bladder
     Dosage: FIRST INFUSION
     Route: 042
     Dates: start: 20190219
  5. OCREVUS [Suspect]
     Active Substance: OCRELIZUMAB
     Indication: Neurogenic bladder
     Dosage: SECOND INFUSION
     Route: 042
     Dates: start: 20190306
  6. CORTISONE [Suspect]
     Active Substance: CORTISONE
     Indication: Product used for unknown indication
     Dosage: UNKNOWN
  7. METICORTEN [Suspect]
     Active Substance: PREDNISONE
     Indication: Hemiplegia
     Dosage: EVERY 1 DAY?AMOUNT PER ADMINISTRATION :0.5 DF
  8. METICORTEN [Suspect]
     Active Substance: PREDNISONE
     Indication: Hemiplegia
     Dosage: EVERY 0.33 DAY
  9. METICORTEN [Suspect]
     Active Substance: PREDNISONE
     Indication: Hemiplegia
     Dosage: EVERY 1 DAY?AMOUNT PER ADMINISTRATION :1 DF
  10. METICORTEN [Suspect]
     Active Substance: PREDNISONE
     Indication: Hemiplegia
     Dosage: EVERY 1 DAY?AMOUNT PER ADMINISTRATION :2 DF
  11. METICORTEN [Suspect]
     Active Substance: PREDNISONE
     Indication: Hemiplegia
     Dosage: EVERY 1 DAY?AMOUNT PER ADMINISTRATION :3 DF
  12. PRIMID [Concomitant]
     Indication: Tremor
  13. ACETAMINOPHEN [Concomitant]
     Active Substance: ACETAMINOPHEN
  14. LEXAPRO [Concomitant]
     Active Substance: ESCITALOPRAM OXALATE
  15. COMPLEX B [VITAMIN B COMPLEX] [Concomitant]
  16. IVERMECTIN [Concomitant]
     Active Substance: IVERMECTIN
     Indication: Product used for unknown indication
     Dosage: EVERY 15 DAY
  17. FLUOXETINE [Concomitant]
     Active Substance: FLUOXETINE HYDROCHLORIDE
     Indication: Anxiety
  18. ASCORBIC ACID [Concomitant]
     Active Substance: ASCORBIC ACID
  19. PREGABALIN [Concomitant]
     Active Substance: PREGABALIN
     Indication: Rheumatic fever

REACTIONS (10)
  - Uhthoff^s phenomenon [Recovered/Resolved]
  - White blood cell count decreased [Recovered/Resolved]
  - Candida infection [Recovered/Resolved]
  - Intentional product use issue [Unknown]
  - Urinary tract infection [Recovered/Resolved]
  - Alanine aminotransferase increased [Recovered/Resolved]
  - Aspartate aminotransferase increased [Recovered/Resolved]
  - Neurogenic bladder [Recovered/Resolved]
  - Influenza [Recovered/Resolved]
  - Product use in unapproved indication [Not Recovered/Not Resolved]

NARRATIVE: CASE EVENT DATE: 20190219
